FAERS Safety Report 9877060 (Version 1)
Quarter: 2014Q1

REPORT INFORMATION
  Report Type: Spontaneous
  Country: US (occurrence: US)
  Receive Date: 20140206
  Receipt Date: 20140206
  Transmission Date: 20141002
  Serious: No
  Sender: FDA-Public Use
  Company Number: US-009507513-1402USA002200

PATIENT
  Sex: Female

DRUGS (3)
  1. PEGINTRON [Suspect]
     Indication: HEPATITIS C
     Dosage: REDIPEN, DOSE:0.5, Q7 DAYS
     Route: 058
     Dates: start: 20140113
  2. REBETOL [Suspect]
     Dosage: 600 MG, QAM
     Route: 048
     Dates: start: 20140113
  3. REBETOL [Suspect]
     Dosage: 400 MG, QPM
     Route: 048
     Dates: start: 20140113

REACTIONS (1)
  - Neck pain [Unknown]
